FAERS Safety Report 11134265 (Version 2)
Quarter: 2015Q2

REPORT INFORMATION
  Report Type: Spontaneous
  Country: US (occurrence: US)
  Receive Date: 20150524
  Receipt Date: 20150604
  Transmission Date: 20150821
  Serious: Yes (Hospitalization, Other)
  Sender: FDA-Public Use
  Company Number: US-UCBSA-2015015995

PATIENT
  Age: 41 Year
  Sex: Female
  Weight: 84 kg

DRUGS (2)
  1. CIMZIA [Suspect]
     Active Substance: CERTOLIZUMAB PEGOL
     Indication: CROHN^S DISEASE
     Dosage: 400 MG, EV 4 WEEKS
     Dates: start: 2013, end: 201405
  2. PENTASA [Concomitant]
     Active Substance: MESALAMINE
     Indication: CROHN^S DISEASE
     Dosage: 1500 MG, 2X/DAY (BID)
     Route: 048

REACTIONS (5)
  - Pneumonia bacterial [Recovered/Resolved]
  - Somnolence [Recovered/Resolved]
  - Renal impairment [Recovered/Resolved]
  - Sepsis [Recovered/Resolved]
  - Heart rate increased [Recovered/Resolved]

NARRATIVE: CASE EVENT DATE: 201406
